FAERS Safety Report 12301019 (Version 1)
Quarter: 2016Q2

REPORT INFORMATION
  Report Type: Spontaneous
  Country: US (occurrence: US)
  Receive Date: 20160425
  Receipt Date: 20160425
  Transmission Date: 20160815
  Serious: No
  Sender: FDA-Public Use
  Company Number: US-BAYER-2016-072684

PATIENT
  Age: 42 Year
  Sex: Female

DRUGS (3)
  1. VALIUM [Concomitant]
     Active Substance: DIAZEPAM
  2. XANAX [Concomitant]
     Active Substance: ALPRAZOLAM
  3. BETASERON [Suspect]
     Active Substance: INTERFERON BETA-1B
     Indication: MULTIPLE SCLEROSIS
     Dosage: 0.3 MG, UNK
     Dates: start: 2001

REACTIONS (7)
  - Insomnia [None]
  - Crying [None]
  - Feeling abnormal [None]
  - Fatigue [None]
  - Weight increased [None]
  - Fall [None]
  - Depressed mood [None]

NARRATIVE: CASE EVENT DATE: 2015
